FAERS Safety Report 8629604 (Version 3)
Quarter: 2013Q3

REPORT INFORMATION
  Report Type: Spontaneous
  Country: US (occurrence: US)
  Receive Date: 20120622
  Receipt Date: 20130920
  Transmission Date: 20140515
  Serious: Yes (Other)
  Sender: FDA-Public Use
  Company Number: US-ASTRAZENECA-2012SE36298

PATIENT
  Age: 53 Year
  Sex: Female
  Weight: 117.9 kg

DRUGS (19)
  1. NEXIUM [Suspect]
     Indication: GASTROOESOPHAGEAL REFLUX DISEASE
     Route: 048
     Dates: start: 200902, end: 201201
  2. NEXIUM [Suspect]
     Indication: GASTROOESOPHAGEAL REFLUX DISEASE
     Route: 048
     Dates: start: 201201
  3. NEXIUM [Suspect]
     Indication: GASTROOESOPHAGEAL REFLUX DISEASE
     Route: 048
     Dates: start: 201202
  4. HYDROCHLOROTHIAZIDE [Concomitant]
     Route: 048
     Dates: start: 201201
  5. HYDROCHLOROTHIAZIDE [Concomitant]
     Route: 048
     Dates: start: 201202
  6. CLINDAMYCIN [Concomitant]
     Route: 048
     Dates: start: 201202
  7. TRAMADOL [Concomitant]
     Route: 048
     Dates: start: 201201
  8. TRAMADOL [Concomitant]
     Route: 048
     Dates: start: 201202
  9. LISINOPRIL [Concomitant]
     Route: 048
     Dates: start: 201201
  10. LISINOPRIL [Concomitant]
     Route: 048
     Dates: start: 201202
  11. VERAPAMIL [Concomitant]
     Route: 048
     Dates: start: 201201
  12. VERAPAMIL [Concomitant]
     Route: 048
     Dates: start: 201202
  13. FLEXERIL [Concomitant]
     Route: 048
     Dates: start: 201201
  14. FLEXERIL [Concomitant]
     Route: 048
     Dates: start: 201202
  15. LYRICA [Concomitant]
     Route: 048
     Dates: start: 201201
  16. LYRICA [Concomitant]
     Route: 048
     Dates: start: 201202
  17. ALPRAZOLAM [Concomitant]
     Indication: ANXIETY
     Dates: start: 201201
  18. ASPIRIN [Concomitant]
     Route: 048
     Dates: start: 201201
  19. LIPITOR [Concomitant]
     Route: 048
     Dates: start: 201201

REACTIONS (14)
  - Gastric neoplasm [Unknown]
  - Osteoporosis [Unknown]
  - Multiple fractures [Unknown]
  - Jaw fracture [Unknown]
  - Ankle fracture [Unknown]
  - Upper limb fracture [Unknown]
  - Foot fracture [Unknown]
  - Tooth fracture [Unknown]
  - Joint injury [Unknown]
  - Pain [Unknown]
  - Joint swelling [Unknown]
  - Fall [Unknown]
  - Balance disorder [Unknown]
  - Dizziness [Unknown]
